FAERS Safety Report 8954652 (Version 2)
Quarter: 2013Q1

REPORT INFORMATION
  Report Type: Spontaneous
  Country: JP (occurrence: JP)
  Receive Date: 20121207
  Receipt Date: 20130129
  Transmission Date: 20140127
  Serious: Yes (Death)
  Sender: FDA-Public Use
  Company Number: JP-OTSUKA-JP-2012-16752

PATIENT
  Age: 86 Year
  Sex: Male
  Weight: 45 kg

DRUGS (20)
  1. SAMSCA [Suspect]
     Indication: POLYURIA
     Dosage: 7.5 MG MILLIGRAM(S), QD
     Route: 048
     Dates: start: 20110302, end: 20110306
  2. SAMSCA [Suspect]
     Indication: CARDIAC FAILURE
     Dosage: 15 MG MILLIGRAM(S), QD
     Route: 048
     Dates: start: 20110307, end: 20110311
  3. SAMSCA [Suspect]
     Dosage: 7.5 MG MILLIGRAM(S), QD
     Route: 048
     Dates: start: 20110312, end: 20110314
  4. PREDOPA [Concomitant]
     Indication: POLYURIA
     Dosage: 2-5 UG/KG/MIN, UNK
     Route: 041
     Dates: start: 20110301, end: 20110324
  5. PREDOPA [Concomitant]
     Indication: CARDIAC FAILURE
  6. LASIX [Concomitant]
     Indication: POLYURIA
     Dosage: 100 MG MILLIGRAM(S), DAILY DOSE
     Route: 041
     Dates: start: 20110302, end: 20110305
  7. LASIX [Concomitant]
     Indication: CARDIAC FAILURE
     Dosage: 160 MG MILLIGRAM(S), DAILY DOSE
     Route: 041
     Dates: start: 20110306, end: 20110308
  8. LASIX [Concomitant]
     Dosage: 240 MG MILLIGRAM(S), DAILY DOSE
     Route: 041
     Dates: start: 20110309, end: 20110322
  9. DOBUTAMINE [Concomitant]
     Indication: POLYURIA
     Dosage: 2-5 UG/KG/MIN, UNK
     Route: 041
     Dates: start: 20110302, end: 20110324
  10. DOBUTAMINE [Concomitant]
     Indication: CARDIAC FAILURE
  11. NORADRENALINE [Concomitant]
     Indication: POLYURIA
     Dosage: 0.02-0.08 UG/KG/MIN, UNK
     Route: 041
     Dates: start: 20110309, end: 20110323
  12. NORADRENALINE [Concomitant]
     Indication: CARDIAC FAILURE
  13. LUPRAC [Concomitant]
     Indication: POLYURIA
     Dosage: 8 MG MILLIGRAM(S), QD
     Route: 048
     Dates: start: 20110302, end: 20110323
  14. LUPRAC [Concomitant]
     Indication: CARDIAC FAILURE
  15. WARFARIN [Concomitant]
     Indication: POLYURIA
     Route: 048
  16. WARFARIN [Concomitant]
     Indication: CARDIAC FAILURE
  17. ANCARON [Concomitant]
     Indication: POLYURIA
     Dosage: UNK
     Route: 065
  18. ANCARON [Concomitant]
     Indication: CARDIAC FAILURE
  19. ARTIST [Concomitant]
     Indication: POLYURIA
     Route: 048
  20. ARTIST [Concomitant]
     Indication: CARDIAC FAILURE

REACTIONS (9)
  - Cardiac failure [Fatal]
  - Disseminated intravascular coagulation [Fatal]
  - Multi-organ failure [Fatal]
  - Blood alkaline phosphatase increased [Fatal]
  - Gamma-glutamyltransferase increased [Fatal]
  - Blood uric acid increased [Fatal]
  - Blood urea increased [Fatal]
  - Blood creatinine increased [Fatal]
  - Hypernatraemia [Not Recovered/Not Resolved]
